FAERS Safety Report 17563717 (Version 1)
Quarter: 2020Q1

REPORT INFORMATION
  Report Type: Report from Study
  Country: DE (occurrence: DE)
  Receive Date: 20200319
  Receipt Date: 20200319
  Transmission Date: 20200409
  Serious: Yes (Hospitalization)
  Sender: FDA-Public Use
  Company Number: DE-BAXTER-2020BAX006291

PATIENT
  Age: 75 Year
  Sex: Female
  Weight: 82 kg

DRUGS (9)
  1. DOXIL [Suspect]
     Active Substance: DOXORUBICIN HYDROCHLORIDE
     Dosage: 1ST CYCLE(S)
     Route: 042
     Dates: start: 20031008, end: 20031008
  2. ARANESP [Concomitant]
     Active Substance: DARBEPOETIN ALFA
     Indication: ANAEMIA
     Route: 058
  3. CARBOPLATIN. [Concomitant]
     Active Substance: CARBOPLATIN
     Indication: UTERINE CANCER
     Dosage: AUC6 2ND CYCLE(S)
     Route: 042
     Dates: start: 20031105, end: 20031105
  4. PYRIDOXINE [Concomitant]
     Active Substance: PYRIDOXINE
     Indication: ANAEMIA
     Dosage: TABLET
     Route: 048
  5. CARBOPLATIN. [Concomitant]
     Active Substance: CARBOPLATIN
     Dosage: AUC6 1ST CYCLE(S)
     Route: 042
     Dates: start: 20031008, end: 20031008
  6. DOXIL [Suspect]
     Active Substance: DOXORUBICIN HYDROCHLORIDE
     Indication: UTERINE CANCER
     Dosage: 2ND CYCLE(S)
     Route: 042
     Dates: start: 20031105, end: 20031105
  7. DOXIL [Suspect]
     Active Substance: DOXORUBICIN HYDROCHLORIDE
     Dosage: 3RD CYCLE(S)
     Route: 042
     Dates: start: 200312, end: 200312
  8. DOXIL [Suspect]
     Active Substance: DOXORUBICIN HYDROCHLORIDE
     Route: 042
     Dates: start: 20031008, end: 200312
  9. CARBOPLATIN. [Concomitant]
     Active Substance: CARBOPLATIN
     Dosage: AUC6* 2 CYCLE(S)
     Route: 042
     Dates: start: 20031008, end: 20031105

REACTIONS (2)
  - Ileus [Recovered/Resolved]
  - Haemoglobin decreased [Recovered/Resolved]

NARRATIVE: CASE EVENT DATE: 20031130
